FAERS Safety Report 23340944 (Version 1)
Quarter: 2023Q4

REPORT INFORMATION
  Report Type: Spontaneous
  Country: US (occurrence: US)
  Receive Date: 20231227
  Receipt Date: 20231227
  Transmission Date: 20240110
  Serious: No
  Sender: FDA-Public Use
  Company Number: US-ALKEM LABORATORIES LIMITED-US-ALKEM-2023-10825

PATIENT

DRUGS (3)
  1. VIGABATRIN [Suspect]
     Active Substance: VIGABATRIN
     Indication: Product used for unknown indication
     Dosage: 50 MILLIGRAM/KILOGRAM, QD
     Route: 065
  2. VIGABATRIN [Suspect]
     Active Substance: VIGABATRIN
     Dosage: 100 MILLIGRAM/KILOGRAM, QD
     Route: 065
  3. VIGABATRIN [Suspect]
     Active Substance: VIGABATRIN
     Dosage: 150 MILLIGRAM/KILOGRAM, QD, INCREASED DOSE
     Route: 065

REACTIONS (1)
  - Eye disorder [Unknown]
